FAERS Safety Report 13917749 (Version 3)
Quarter: 2017Q3

REPORT INFORMATION
  Report Type: Report from Study
  Country: US (occurrence: US)
  Receive Date: 20170829
  Receipt Date: 20170910
  Transmission Date: 20171127
  Serious: No
  Sender: FDA-Public Use
  Company Number: US-AMGEN-USASL2017128844

PATIENT
  Age: 73 Year
  Sex: Female

DRUGS (2)
  1. ENBREL [Suspect]
     Active Substance: ETANERCEPT
     Dosage: 50 MG, QWK
     Route: 065
     Dates: start: 201708
  2. ENBREL [Suspect]
     Active Substance: ETANERCEPT
     Indication: RHEUMATOID ARTHRITIS
     Dosage: 50 MG, QWK
     Route: 065
     Dates: start: 20170807

REACTIONS (10)
  - Wrong device dispensed [Unknown]
  - Incision site erythema [Unknown]
  - Rash [Unknown]
  - Drug dose omission [Unknown]
  - Arthropod bite [Unknown]
  - Rash erythematous [Unknown]
  - Contusion [Unknown]
  - Injection site bruising [Recovered/Resolved]
  - Injection site erythema [Not Recovered/Not Resolved]
  - Incision site pain [Unknown]

NARRATIVE: CASE EVENT DATE: 201708
